FAERS Safety Report 5521776-6 (Version None)
Quarter: 2007Q4

REPORT INFORMATION
  Report Type: 
  Country: None (occurrence: None)
  Receive Date: 20071120
  Receipt Date: 20071115
  Transmission Date: 20080405
  Serious: Yes (Other)
  Sender: FDA-Public Use
  Company Number: JP-AVENTIS-200713026JP

PATIENT
  Age: 2 Year
  Sex: Male

DRUGS (6)
  1. TARGOCID [Suspect]
     Indication: MENINGITIS
  2. CLAFORAN [Suspect]
     Indication: MENINGITIS
  3. VICCILLIN [Suspect]
  4. CARBENIN [Suspect]
  5. VANCOMYCIN [Suspect]
  6. IMMUNE GLOBULIN INTRAVENOUS (HUMAN) [Suspect]

REACTIONS (2)
  - MENINGITIS [None]
  - NO THERAPEUTIC RESPONSE [None]
